FAERS Safety Report 6655673-X (Version None)
Quarter: 2010Q1

REPORT INFORMATION
  Report Type: 
  Country: None (occurrence: None)
  Receive Date: 20100326
  Receipt Date: 20100326
  Transmission Date: 20100710
  Serious: Yes (Other)
  Sender: FDA-Public Use
  Company Number: None

PATIENT
  Age: 49 Year
  Sex: Female
  Weight: 86.1834 kg

DRUGS (1)
  1. CHANTIX [Suspect]
     Indication: SMOKING CESSATION THERAPY
     Dosage: 1MG DAILY MOUTH
     Route: 048
     Dates: start: 20091228, end: 20100228

REACTIONS (5)
  - ANXIETY [None]
  - FEAR [None]
  - MORBID THOUGHTS [None]
  - PANIC ATTACK [None]
  - SUICIDAL IDEATION [None]
